FAERS Safety Report 5246706-6 (Version None)
Quarter: 2007Q1

REPORT INFORMATION
  Report Type: 
  Country: None (occurrence: None)
  Receive Date: 20070226
  Receipt Date: 20070223
  Transmission Date: 20070707
  Serious: Yes (Death)
  Sender: FDA-Public Use
  Company Number: US-BRISTOL-MYERS SQUIBB COMPANY-13690813

PATIENT
  Age: 45 Year

DRUGS (2)
  1. COUMADIN [Suspect]
  2. GLUCOPHAGE [Suspect]

REACTIONS (1)
  - CEREBROVASCULAR ACCIDENT [None]
